FAERS Safety Report 25947861 (Version 2)
Quarter: 2025Q4

REPORT INFORMATION
  Report Type: Spontaneous
  Country: US (occurrence: US)
  Receive Date: 20251022
  Receipt Date: 20251122
  Transmission Date: 20260118
  Serious: No
  Sender: SUNOVION
  Company Number: US-SUMITOMO PHARMA SWITZERLAND GMBH-2025SPA012605

PATIENT
  Age: 89 Year
  Sex: Male

DRUGS (21)
  1. ORGOVYX [Suspect]
     Active Substance: RELUGOLIX
     Indication: Prostate cancer
     Dosage: 360 MG, SINGLE
     Route: 048
     Dates: start: 20250924, end: 20250924
  2. ORGOVYX [Suspect]
     Active Substance: RELUGOLIX
     Dosage: 120 MG, QD
     Route: 048
     Dates: start: 20250925
  3. AMOXICILLIN AND CLAVULANATE POTASSIUM [Concomitant]
     Active Substance: AMOXICILLIN\CLAVULANATE POTASSIUM
  4. BICALUTAMIDE [Concomitant]
     Active Substance: BICALUTAMIDE
  5. DICLOFENAC [Concomitant]
     Active Substance: DICLOFENAC
     Dosage: EXTERNAL
  6. DIPHENHYDRAMINE [Concomitant]
     Active Substance: DIPHENHYDRAMINE
  7. DONEPEZIL [Concomitant]
     Active Substance: DONEPEZIL
  8. ELIQUIS [Concomitant]
     Active Substance: APIXABAN
  9. ENTRESTO [Concomitant]
     Active Substance: SACUBITRIL\VALSARTAN
  10. FINASTERIDE [Concomitant]
     Active Substance: FINASTERIDE
  11. FUROSEMIDE [Concomitant]
     Active Substance: FUROSEMIDE
  12. GABAPENTIN [Concomitant]
     Active Substance: GABAPENTIN
  13. GLIPIZIDE [Concomitant]
     Active Substance: GLIPIZIDE
  14. ISOSORBIDE [Concomitant]
     Active Substance: ISOSORBIDE
  15. JARDIANCE [Concomitant]
     Active Substance: EMPAGLIFLOZIN
  16. PANTOPRAZOLE [Concomitant]
     Active Substance: PANTOPRAZOLE
  17. ROSUVASTATIN [Concomitant]
     Active Substance: ROSUVASTATIN
  18. SERTRALINE [Concomitant]
     Active Substance: SERTRALINE HYDROCHLORIDE
  19. SPIRONOLACTONE [Concomitant]
     Active Substance: SPIRONOLACTONE
  20. TAMSULOSIN [Concomitant]
     Active Substance: TAMSULOSIN
  21. TOBRAMYCIN [Concomitant]
     Active Substance: TOBRAMYCIN
     Route: 047

REACTIONS (3)
  - Pruritus [Unknown]
  - Localised infection [Unknown]
  - Blood urine present [Unknown]
